FAERS Safety Report 10214300 (Version 3)
Quarter: 2014Q2

REPORT INFORMATION
  Report Type: Spontaneous
  Country: US (occurrence: US)
  Receive Date: 20140603
  Receipt Date: 20140626
  Transmission Date: 20141212
  Serious: No
  Sender: FDA-Public Use
  Company Number: US-PFIZER INC-2014150845

PATIENT
  Age: 71 Year
  Sex: Female

DRUGS (20)
  1. XELJANZ [Suspect]
     Indication: RHEUMATOID ARTHRITIS
     Dosage: 5MG (1 TABLET) TWICE DAILY
     Route: 048
     Dates: start: 201309, end: 201405
  2. PRAMIPEXOLE DIHYDROCHLORIDE [Concomitant]
     Dosage: 1 MG
  3. VICTOZA [Concomitant]
     Dosage: UNK
  4. LANSOPRAZOLE [Concomitant]
     Dosage: 30 MG
  5. METOPROLOL TARTRATE [Concomitant]
     Dosage: 25 MG
  6. CELEBREX [Concomitant]
     Dosage: 200 MG
  7. AZOPT [Concomitant]
     Dosage: 1 %
  8. LOSARTAN POTASSIUM [Concomitant]
     Dosage: 25 MG
  9. SIMVASTATIN [Concomitant]
     Dosage: 20 MG
  10. GABAPENTIN [Concomitant]
     Dosage: 300 MG
  11. MIRTAZAPINE [Concomitant]
     Dosage: 30 MG
  12. JANUVIA [Concomitant]
     Dosage: 100 MG
  13. GLIPIZIDE XL [Concomitant]
     Dosage: 5 MG
  14. TRAVATAN Z [Concomitant]
     Dosage: 0.004 %
  15. LATANOPROST [Concomitant]
     Dosage: 0.005 %
  16. ALPHAGAN P [Concomitant]
     Dosage: 0.1 %
  17. FUROSEMIDE [Concomitant]
     Dosage: 20 MG
  18. PREDNISONE [Concomitant]
     Dosage: 2.5 MG
  19. VENLAFAXINE HYDROCHLORIDE [Concomitant]
     Dosage: 150 MG
  20. IBANDRONATE SODIUM [Concomitant]
     Dosage: 150 MG

REACTIONS (1)
  - Drug ineffective [Unknown]
